FAERS Safety Report 10488100 (Version 1)
Quarter: 2014Q4

REPORT INFORMATION
  Report Type: Spontaneous
  Country: CH (occurrence: CH)
  Receive Date: 20141002
  Receipt Date: 20141002
  Transmission Date: 20150528
  Serious: Yes (Life-Threatening, Disabling)
  Sender: FDA-Public Use
  Company Number: PHHY2014CH126722

PATIENT
  Age: 1 Day
  Sex: Male
  Weight: 3 kg

DRUGS (3)
  1. CITALOPRAM [Suspect]
     Active Substance: CITALOPRAM HYDROBROMIDE
     Indication: PRODUCT USED FOR UNKNOWN INDICATION
     Dates: end: 2014
  2. FLUOXETINE HYDROCHLORIDE. [Suspect]
     Active Substance: FLUOXETINE HYDROCHLORIDE
     Indication: PRODUCT USED FOR UNKNOWN INDICATION
     Dates: end: 2013
  3. KEPPRA [Suspect]
     Active Substance: LEVETIRACETAM

REACTIONS (8)
  - Dysmorphism [Unknown]
  - Atrioventricular septal defect [Unknown]
  - Neonatal respiratory distress syndrome [Unknown]
  - Talipes [Unknown]
  - Aorta hypoplasia [Unknown]
  - Delayed fontanelle closure [Unknown]
  - Hypospadias [Unknown]
  - Coarctation of the aorta [Unknown]

NARRATIVE: CASE EVENT DATE: 20140305
